FAERS Safety Report 12927674 (Version 1)
Quarter: 2016Q4

REPORT INFORMATION
  Report Type: Spontaneous
  Country: US (occurrence: US)
  Receive Date: 20161109
  Receipt Date: 20161109
  Transmission Date: 20170207
  Serious: Yes (Hospitalization, Other)
  Sender: FDA-Public Use
  Company Number: None

PATIENT
  Age: 59 Year
  Sex: Female
  Weight: 87.4 kg

DRUGS (1)
  1. DOXORUBICIN [Suspect]
     Active Substance: DOXORUBICIN
     Indication: BREAST CANCER
     Dosage: ?          OTHER FREQUENCY:EVERY 14 DAYS;?
     Route: 041
     Dates: start: 20160101, end: 20160425

REACTIONS (1)
  - Cardiac failure [None]

NARRATIVE: CASE EVENT DATE: 20160913
